FAERS Safety Report 9313234 (Version 1)
Quarter: 2013Q2

REPORT INFORMATION
  Report Type: Spontaneous
  Country: US (occurrence: US)
  Receive Date: 20130528
  Receipt Date: 20130528
  Transmission Date: 20140414
  Serious: No
  Sender: FDA-Public Use
  Company Number: US-ABBOTT-13P-163-1083269-00

PATIENT
  Age: 57 Year
  Sex: Male
  Weight: 124.85 kg

DRUGS (7)
  1. ANDROGEL [Suspect]
     Indication: BLOOD TESTOSTERONE DECREASED
     Dosage: 3 PUMPS DAILY
     Dates: start: 201304
  2. ANDROGEL [Suspect]
     Dosage: 4 PUMPS DAILY
     Dates: start: 201303, end: 201304
  3. ANDROGEL [Suspect]
     Dosage: 2 PUMPS DAILY
     Dates: start: 201302, end: 201303
  4. UNKNOWN HIGH BLOOD PRESSURE MEDICATION [Concomitant]
     Indication: PRODUCT USED FOR UNKNOWN INDICATION
  5. GLUCOPHAGE [Concomitant]
     Indication: PRODUCT USED FOR UNKNOWN INDICATION
  6. VITAMIN D [Concomitant]
     Indication: PRODUCT USED FOR UNKNOWN INDICATION
  7. INSULIN [Concomitant]
     Indication: PRODUCT USED FOR UNKNOWN INDICATION

REACTIONS (1)
  - Musculoskeletal pain [Not Recovered/Not Resolved]
